FAERS Safety Report 8528611-2 (Version None)
Quarter: 2012Q3

REPORT INFORMATION
  Report Type: 
  Country: None (occurrence: None)
  Receive Date: 20120723
  Receipt Date: 20120716
  Transmission Date: 20120928
  Serious: No
  Sender: FDA-Public Use
  Company Number: US-BIOGENIDEC-2012BI013500

PATIENT
  Sex: Female

DRUGS (1)
  1. TYSABRI [Suspect]
     Indication: MULTIPLE SCLEROSIS
     Route: 042
     Dates: start: 20091002

REACTIONS (12)
  - MULTIPLE SCLEROSIS [None]
  - BODY MASS INDEX DECREASED [None]
  - FATIGUE [None]
  - HYPOAESTHESIA [None]
  - HEADACHE [None]
  - BALANCE DISORDER [None]
  - DECREASED APPETITE [None]
  - MYALGIA [None]
  - VISION BLURRED [None]
  - URINARY TRACT INFECTION [None]
  - INFLUENZA LIKE ILLNESS [None]
  - BLINDNESS [None]
